FAERS Safety Report 7790630-1 (Version None)
Quarter: 2011Q3

REPORT INFORMATION
  Report Type: 
  Country: None (occurrence: None)
  Receive Date: 20110930
  Receipt Date: 20110512
  Transmission Date: 20111222
  Serious: No
  Sender: FDA-Public Use
  Company Number: US-BAYER-2011-041084

PATIENT
  Age: 69 Year
  Sex: Male

DRUGS (1)
  1. LEVITRA [Suspect]
     Indication: ERECTILE DYSFUNCTION
     Dosage: 20 MG, PRN
     Route: 048
     Dates: start: 20100501

REACTIONS (1)
  - HEADACHE [None]
